FAERS Safety Report 4491911-X (Version None)
Quarter: 2004Q4

REPORT INFORMATION
  Report Type: 
  Country: None (occurrence: None)
  Receive Date: 20041029
  Receipt Date: 20041029
  Transmission Date: 20050328
  Serious: No
  Sender: FDA-Public Use
  Company Number: None

PATIENT
  Age: 34 Year
  Sex: Female
  Weight: 60.3284 kg

DRUGS (1)
  1. CELEXA [Suspect]
     Indication: MAJOR DEPRESSION
     Dosage: 1 TABLET   ORAL
     Route: 048
     Dates: start: 20040401, end: 20041028

REACTIONS (7)
  - AMNESIA [None]
  - FATIGUE [None]
  - NERVOUSNESS [None]
  - PRURITUS [None]
  - SOMNOLENCE [None]
  - STOMACH DISCOMFORT [None]
  - VISION BLURRED [None]
